FAERS Safety Report 24400982 (Version 1)
Quarter: 2024Q4

REPORT INFORMATION
  Report Type: Spontaneous
  Country: NL (occurrence: NL)
  Receive Date: 20241006
  Receipt Date: 20241006
  Transmission Date: 20250115
  Serious: Yes (Other)
  Sender: JOHNSON AND JOHNSON
  Company Number: None

PATIENT
  Age: 68 Year
  Sex: Female
  Weight: 62 kg

DRUGS (3)
  1. RIVAROXABAN [Suspect]
     Active Substance: RIVAROXABAN
     Indication: Complication associated with device
     Dosage: UNK
     Route: 048
     Dates: start: 20240904, end: 20240921
  2. CLOPIDOGREL [Suspect]
     Active Substance: CLOPIDOGREL BISULFATE
     Indication: Angiopathy
     Dosage: UNK
     Route: 065
     Dates: start: 20240704, end: 20240714
  3. ROSUVASTATIN CALCIUM [Suspect]
     Active Substance: ROSUVASTATIN CALCIUM
     Indication: Angiopathy
     Dosage: 1X
     Route: 065
     Dates: start: 20240704

REACTIONS (4)
  - Headache [Recovering/Resolving]
  - Pruritus [Recovering/Resolving]
  - Pyrexia [Recovering/Resolving]
  - Constipation [Recovering/Resolving]
